FAERS Safety Report 22604849 (Version 1)
Quarter: 2023Q2

REPORT INFORMATION
  Report Type: Spontaneous
  Country: US (occurrence: US)
  Receive Date: 20230615
  Receipt Date: 20230615
  Transmission Date: 20230722
  Serious: No
  Sender: FDA-Public Use
  Company Number: US-THEA-2023000615

PATIENT
  Sex: Female

DRUGS (1)
  1. AZASITE [Suspect]
     Active Substance: AZITHROMYCIN MONOHYDRATE
     Indication: Eye infection
     Dosage: TID
     Route: 047
     Dates: start: 20230331

REACTIONS (4)
  - Product dose omission issue [Unknown]
  - Product packaging quantity issue [Unknown]
  - Product prescribing error [Unknown]
  - Drug ineffective [Unknown]
